FAERS Safety Report 5594084-5 (Version None)
Quarter: 2008Q1

REPORT INFORMATION
  Report Type: 
  Country: None (occurrence: None)
  Receive Date: 20080116
  Receipt Date: 20080102
  Transmission Date: 20080703
  Serious: Yes (Other)
  Sender: FDA-Public Use
  Company Number: CA-GENENTECH-229678

PATIENT
  Sex: Male
  Weight: 69.8 kg

DRUGS (6)
  1. BEVACIZUMAB [Suspect]
     Indication: COLON CANCER
     Dosage: 524 MG, Q3W
     Route: 042
     Dates: start: 20051115, end: 20060831
  2. BEVACIZUMAB [Suspect]
     Dosage: 584 MG, Q3W
     Route: 042
     Dates: end: 20060919
  3. CAPECITABINE [Suspect]
     Indication: COLON CANCER
     Dosage: 1800 MG, BID
     Route: 048
     Dates: start: 20051115
  4. CAPECITABINE [Suspect]
     Dosage: 1300 MG, BID
     Route: 048
  5. OXALIPLATIN [Suspect]
     Indication: COLON CANCER
     Dosage: 247 MG, Q3W
     Route: 042
     Dates: start: 20051115
  6. OXALIPLATIN [Suspect]
     Dosage: 190 MG, Q3W
     Route: 042
     Dates: start: 20060323

REACTIONS (1)
  - IDIOPATHIC THROMBOCYTOPENIC PURPURA [None]
